FAERS Safety Report 11798899 (Version 1)
Quarter: 2015Q4

REPORT INFORMATION
  Report Type: Spontaneous
  Country: US (occurrence: US)
  Receive Date: 20151203
  Receipt Date: 20151203
  Transmission Date: 20160305
  Serious: No
  Sender: FDA-Public Use
  Company Number: US-MYLANLABS-2015M1028582

PATIENT
  Sex: Female

DRUGS (1)
  1. RABEPRAZOLE [Suspect]
     Active Substance: RABEPRAZOLE
     Indication: EROSIVE OESOPHAGITIS
     Dosage: UNK UNK

REACTIONS (3)
  - Acne cystic [Recovered/Resolved]
  - Folliculitis [Recovered/Resolved]
  - Reaction to drug excipients [Recovered/Resolved]
